FAERS Safety Report 8324518-4 (Version None)
Quarter: 2012Q1

REPORT INFORMATION
  Report Type: 
  Country: None (occurrence: None)
  Receive Date: 20120315
  Receipt Date: 20110523
  Transmission Date: 20120608
  Serious: No
  Sender: FDA-Public Use
  Company Number: PHHY2011US44398

PATIENT
  Age: 41 Year
  Sex: Female

DRUGS (1)
  1. GILENYA [Suspect]
     Indication: MULTIPLE SCLEROSIS
     Dosage: 0.5 MG, EVERY DAY, ORAL
     Route: 048
     Dates: start: 20110411, end: 20110520

REACTIONS (3)
  - MIGRAINE [None]
  - RASH [None]
  - DIZZINESS [None]
